FAERS Safety Report 6177992-6 (Version None)
Quarter: 2009Q2

REPORT INFORMATION
  Report Type: 
  Country: None (occurrence: None)
  Receive Date: 20090504
  Receipt Date: 20090119
  Transmission Date: 20091009
  Serious: No
  Sender: FDA-Public Use
  Company Number: US-ALEXION-A200900022

PATIENT
  Sex: Male

DRUGS (16)
  1. SOLIRIS [Suspect]
     Indication: PAROXYSMAL NOCTURNAL HAEMOGLOBINURIA
     Dosage: 600 MG, UNK
     Route: 042
     Dates: start: 20071129, end: 20071219
  2. SOLIRIS [Suspect]
     Dosage: 900 MG, UNK
     Route: 042
     Dates: start: 20071226
  3. COLOSTRUM [Concomitant]
     Dosage: 2 TSP (10 ML), BID
     Route: 048
  4. BETACAROTENE [Concomitant]
     Dosage: UNK
     Route: 048
  5. CAL-MAG                            /01623301/ [Concomitant]
     Dosage: 2, BID
     Route: 048
  6. IRON [Concomitant]
     Dosage: UNK
     Route: 048
  7. GLUCOSAMINE [Concomitant]
     Dosage: 50 MG, UNK
     Route: 048
  8. VITAMIN A [Concomitant]
     Dosage: UNK
     Route: 048
  9. FOLIC ACID [Concomitant]
     Dosage: 1 MG, BID
     Route: 048
  10. SAW PALMETTO                       /00833501/ [Concomitant]
     Dosage: UNK
     Route: 048
  11. CHLORELLA VULGARIS [Concomitant]
     Dosage: UNK
     Route: 048
  12. LOVAZA [Concomitant]
     Dosage: UNK
     Route: 048
  13. ZINC [Concomitant]
     Dosage: UNK
     Route: 048
  14. SELENIUM [Concomitant]
     Dosage: 100 MG, BID
     Route: 048
  15. EMULFY FORMULA [Concomitant]
     Dosage: 3 UNK, BID
     Route: 048
  16. VITAMIN B-COMPLEX, INCL COMBINATIONS [Concomitant]
     Dosage: UNK
     Route: 048

REACTIONS (1)
  - ASCITES [None]
